FAERS Safety Report 6290461-8 (Version None)
Quarter: 2009Q3

REPORT INFORMATION
  Report Type: 
  Country: None (occurrence: None)
  Receive Date: 20090730
  Receipt Date: 20090421
  Transmission Date: 20100115
  Serious: No
  Sender: FDA-Public Use
  Company Number: US-BRISTOL-MYERS SQUIBB COMPANY-14596654

PATIENT
  Sex: Male

DRUGS (1)
  1. COUMADIN [Suspect]
     Dosage: HAS BEEN ON SINCE 20 YRS.

REACTIONS (2)
  - DECREASED APPETITE [None]
  - GENERAL PHYSICAL HEALTH DETERIORATION [None]
